FAERS Safety Report 11713782 (Version 2)
Quarter: 2015Q4

REPORT INFORMATION
  Report Type: Spontaneous
  Country: US (occurrence: US)
  Receive Date: 20151109
  Receipt Date: 20151124
  Transmission Date: 20160304
  Serious: No
  Sender: FDA-Public Use
  Company Number: US-BAYER-2015-463163

PATIENT
  Age: 81 Year
  Sex: Female
  Weight: 63.49 kg

DRUGS (5)
  1. OXYTROL FOR WOMEN [Suspect]
     Active Substance: OXYBUTYNIN
     Route: 061
  2. ESTRADIOL. [Concomitant]
     Active Substance: ESTRADIOL
  3. LEVOTHYROXINE. [Concomitant]
     Active Substance: LEVOTHYROXINE
  4. LORATADINE. [Concomitant]
     Active Substance: LORATADINE
     Indication: SEASONAL ALLERGY
  5. BAYER LOW DOSE [Suspect]
     Active Substance: ASPIRIN

REACTIONS (4)
  - Expired product administered [Not Recovered/Not Resolved]
  - Product use issue [None]
  - Therapeutic response unexpected [None]
  - Pruritus [Recovered/Resolved]

NARRATIVE: CASE EVENT DATE: 201406
